FAERS Safety Report 8096350-0 (Version None)
Quarter: 2012Q1

REPORT INFORMATION
  Report Type: 
  Country: None (occurrence: None)
  Receive Date: 20120131
  Receipt Date: 20120125
  Transmission Date: 20120608
  Serious: Yes (Death, Other)
  Sender: FDA-Public Use
  Company Number: PHHY2012CA007309

PATIENT
  Age: 42 Year
  Sex: Female

DRUGS (2)
  1. PREDNISONE TAB [Suspect]
     Indication: CROHN'S DISEASE
  2. STEROIDS NOS [Suspect]

REACTIONS (4)
  - DEATH [None]
  - MATERNAL EXPOSURE DURING PREGNANCY [None]
  - CATARACT [None]
  - BLINDNESS [None]
